FAERS Safety Report 25869229 (Version 1)
Quarter: 2025Q4

REPORT INFORMATION
  Report Type: Spontaneous
  Country: JP (occurrence: JP)
  Receive Date: 20251001
  Receipt Date: 20251001
  Transmission Date: 20260117
  Serious: Yes (Other)
  Sender: AMGEN
  Company Number: JP-AMGEN-JPNSP2025192909

PATIENT
  Age: 6 Decade

DRUGS (2)
  1. BLINCYTO [Suspect]
     Active Substance: BLINATUMOMAB
     Indication: B precursor type acute leukaemia
     Dosage: 9 MICROGRAM, CONTINUING, 24 HR DIV, CENTRAL VENOUS (CV)
     Route: 040
     Dates: start: 20250108, end: 2025
  2. BLINCYTO [Suspect]
     Active Substance: BLINATUMOMAB
     Dosage: 28 MICROGRAM, CONTINUING, 24 HR DIV, CENTRAL VENOUS (CV)
     Route: 040
     Dates: start: 2025, end: 20250611

REACTIONS (1)
  - Myelosuppression [Not Recovered/Not Resolved]
